FAERS Safety Report 6833444-9 (Version None)
Quarter: 2010Q3

REPORT INFORMATION
  Report Type: 
  Country: None (occurrence: None)
  Receive Date: 20100712
  Receipt Date: 20070620
  Transmission Date: 20110219
  Serious: No
  Sender: FDA-Public Use
  Company Number: US-PFIZER INC-2007025590

PATIENT
  Sex: Female
  Weight: 71.67 kg

DRUGS (6)
  1. CHANTIX [Suspect]
     Indication: SMOKING CESSATION THERAPY
     Route: 048
     Dates: start: 20070322
  2. IMITREX [Concomitant]
  3. ESGIC-PLUS [Concomitant]
  4. PRILOSEC [Concomitant]
  5. ALLEGRA D 24 HOUR [Concomitant]
  6. PROTONIX [Concomitant]

REACTIONS (2)
  - FAECES DISCOLOURED [None]
  - NAUSEA [None]
